FAERS Safety Report 4326602-9 (Version None)
Quarter: 2004Q1

REPORT INFORMATION
  Report Type: 
  Country: None (occurrence: None)
  Receive Date: 20040330
  Receipt Date: 20040316
  Transmission Date: 20041129
  Serious: Yes (Hospitalization)
  Sender: FDA-Public Use
  Company Number: PHRM2004FR01251

PATIENT
  Age: 55 Year
  Sex: Female
  Weight: 55 kg

DRUGS (12)
  1. ZOMETA [Suspect]
     Indication: HYPERCALCAEMIA OF MALIGNANCY
     Dosage: 4 MG, ONCE/SINGLE
     Route: 042
     Dates: start: 20040218, end: 20040218
  2. ALDACTONE [Concomitant]
     Route: 048
     Dates: end: 20040220
  3. ALKERAN [Concomitant]
     Route: 065
  4. LASIX [Concomitant]
     Route: 065
  5. TRIATEC [Concomitant]
     Route: 048
  6. HEMIGOXINE NATIVELLE [Concomitant]
     Route: 048
  7. NEURONTIN [Concomitant]
     Route: 048
  8. RIVOTRIL [Concomitant]
     Route: 048
  9. LEVOTHYROXINE SODIUM [Concomitant]
     Route: 048
  10. PREVISCAN [Concomitant]
     Route: 048
  11. LEXOMIL [Concomitant]
     Route: 048
  12. DURAGESIC [Concomitant]
     Route: 062

REACTIONS (10)
  - ALANINE AMINOTRANSFERASE INCREASED [None]
  - ASPARTATE AMINOTRANSFERASE INCREASED [None]
  - BLOOD CREATININE INCREASED [None]
  - BLOOD UREA INCREASED [None]
  - CHILLS [None]
  - CREATININE RENAL CLEARANCE DECREASED [None]
  - CYTOLYTIC HEPATITIS [None]
  - GAMMA-GLUTAMYLTRANSFERASE INCREASED [None]
  - PYREXIA [None]
  - RENAL FAILURE ACUTE [None]
